FAERS Safety Report 5366675-8 (Version None)
Quarter: 2007Q2

REPORT INFORMATION
  Report Type: 
  Country: None (occurrence: None)
  Receive Date: 20070622
  Receipt Date: 20060517
  Transmission Date: 20071010
  Serious: No
  Sender: FDA-Public Use
  Company Number: US-ASTRAZENECA-2006UW09714

PATIENT
  Age: 63 Year
  Sex: Female
  Weight: 83 kg

DRUGS (3)
  1. RHINOCORT [Suspect]
     Indication: SINUS OPERATION
     Dosage: 1 SPRAY
     Route: 045
     Dates: start: 20060501
  2. MEDROL [Concomitant]
  3. SYNTHROID [Concomitant]

REACTIONS (1)
  - FEELING JITTERY [None]
